FAERS Safety Report 24249643 (Version 1)
Quarter: 2024Q3

REPORT INFORMATION
  Report Type: Spontaneous
  Country: US (occurrence: None)
  Receive Date: 20240823
  Receipt Date: 20240823
  Transmission Date: 20241017
  Serious: Yes (Other)
  Sender: Public
  Company Number: None

PATIENT
  Age: 18 Month
  Sex: Male
  Weight: 10 kg

DRUGS (4)
  1. TAZEMETOSTAT [Suspect]
     Active Substance: TAZEMETOSTAT
     Dosage: FREQUENCY : TWICE A DAY;?OTHER ROUTE : NG;?
     Route: 050
     Dates: start: 20240801, end: 20240815
  2. METOCLOPRAMIDE [Concomitant]
     Active Substance: METOCLOPRAMIDE
     Dates: start: 20240604
  3. NEUPOGEN [Concomitant]
     Active Substance: FILGRASTIM
     Dates: start: 20240430
  4. BACTRIM [Concomitant]
     Active Substance: SULFAMETHOXAZOLE\TRIMETHOPRIM
     Dates: start: 20231208

REACTIONS (2)
  - Penile swelling [None]
  - Penile discharge [None]

NARRATIVE: CASE EVENT DATE: 20240804
